FAERS Safety Report 8855446 (Version 1)
Quarter: 2012Q4

REPORT INFORMATION
  Report Type: 
  Country: US (occurrence: US)
  Receive Date: 20121023
  Receipt Date: 20121023
  Transmission Date: 20130627
  Serious: Yes (Other)
  Sender: FDA-Public Use
  Company Number: US-MERCK-1210USA009252

PATIENT
  Sex: Female

DRUGS (1)
  1. SAPHRIS [Suspect]
     Indication: BIPOLAR DISORDER
     Dosage: 5 mg, qd
     Route: 060
     Dates: start: 201209, end: 201210

REACTIONS (3)
  - Convulsion [Unknown]
  - Underdose [Unknown]
  - Inappropriate schedule of drug administration [Unknown]
